FAERS Safety Report 13547659 (Version 1)
Quarter: 2017Q2

REPORT INFORMATION
  Report Type: Spontaneous
  Country: GB (occurrence: GB)
  Receive Date: 20170515
  Receipt Date: 20170515
  Transmission Date: 20170830
  Serious: Yes (Other)
  Sender: FDA-Public Use
  Company Number: GB-TEVA-766373ACC

PATIENT
  Sex: Male

DRUGS (2)
  1. TEMAZEPAM. [Suspect]
     Active Substance: TEMAZEPAM
     Route: 065
     Dates: start: 2014
  2. BENZODIAZEPINE [Concomitant]
     Active Substance: BENZODIAZEPINE
     Route: 065

REACTIONS (3)
  - Accidental exposure to product [Unknown]
  - Dyspraxia [Unknown]
  - Abnormal behaviour [Unknown]

NARRATIVE: CASE EVENT DATE: 2014
